FAERS Safety Report 23159463 (Version 1)
Quarter: 2023Q4

REPORT INFORMATION
  Report Type: Spontaneous
  Country: NL (occurrence: NL)
  Receive Date: 20231108
  Receipt Date: 20231108
  Transmission Date: 20240110
  Serious: Yes (Other)
  Sender: FDA-Public Use
  Company Number: NL-Abdi Farma-ABD202310-000107

PATIENT
  Age: 39 Year
  Sex: Female

DRUGS (4)
  1. VORICONAZOLE [Suspect]
     Active Substance: VORICONAZOLE
     Indication: Fusarium infection
     Dosage: 200 MILLIGRAM, QD (200 MG TWICE DAILY)
     Route: 065
  2. POSACONAZOLE [Suspect]
     Active Substance: POSACONAZOLE
     Indication: Prophylaxis
     Dosage: 300 MILLIGRAM, QD
     Route: 065
  3. AMPHOTERICIN B [Suspect]
     Active Substance: AMPHOTERICIN B
     Indication: Fusarium infection
     Dosage: 3 MILLIGRAM/KILOGRAM, QD (INTRAVENOUS LIPOSOMAL)
     Route: 065
  4. CYTARABINE [Concomitant]
     Active Substance: CYTARABINE
     Indication: Chemotherapy
     Dosage: 1.5 G/M2 TWICE DAILY FOR 6 CONSECUTIVE DAYS
     Route: 065

REACTIONS (2)
  - Leukopenia [Recovered/Resolved]
  - Erythema [Unknown]
